FAERS Safety Report 15649616 (Version 2)
Quarter: 2018Q4

REPORT INFORMATION
  Report Type: Report from Study
  Country: GB (occurrence: GB)
  Receive Date: 20181122
  Receipt Date: 20181212
  Transmission Date: 20190205
  Serious: Yes (Other)
  Sender: FDA-Public Use
  Company Number: PHHY2018GB059204

PATIENT
  Sex: Female
  Weight: 72 kg

DRUGS (7)
  1. CILEST [Concomitant]
     Active Substance: ETHINYL ESTRADIOL\NORGESTIMATE
     Indication: ORAL CONTRACEPTION
     Dosage: 35/250 MG
     Route: 048
     Dates: start: 20160711, end: 201801
  2. BECLONASE [Concomitant]
     Indication: SEASONAL ALLERGY
     Dosage: PRN
     Route: 045
     Dates: start: 20180426
  3. AIN457 [Suspect]
     Active Substance: SECUKINUMAB
     Indication: PSORIASIS
     Dosage: 300 MG, QW
     Route: 058
     Dates: start: 20161017, end: 20170918
  4. ENSTILAR [Concomitant]
     Active Substance: BETAMETHASONE DIPROPIONATE\CALCIPOTRIENE HYDRATE
     Indication: PSORIASIS
     Dosage: PRN
     Route: 065
  5. CETRIZINE [Concomitant]
     Active Substance: CETIRIZINE HYDROCHLORIDE
     Indication: SEASONAL ALLERGY
     Dosage: 10 MG, QD
     Route: 065
     Dates: start: 20180625
  6. AIN457 [Suspect]
     Active Substance: SECUKINUMAB
     Dosage: 300 MG, QW
     Route: 058
     Dates: start: 20180207, end: 20180307
  7. NITROFURANTOIN. [Concomitant]
     Active Substance: NITROFURANTOIN
     Indication: URINARY TRACT INFECTION
     Dosage: 50 MG, QD
     Route: 065
     Dates: start: 20180625, end: 20180702

REACTIONS (3)
  - Maternal exposure during pregnancy [Unknown]
  - Placental disorder [Unknown]
  - Foetal growth restriction [Unknown]
